FAERS Safety Report 10018055 (Version 2)
Quarter: 2014Q1

REPORT INFORMATION
  Report Type: Spontaneous
  Country: US (occurrence: US)
  Receive Date: 20140318
  Receipt Date: 20140318
  Transmission Date: 20141002
  Serious: Yes (Life-Threatening)
  Sender: FDA-Public Use
  Company Number: US-BRISTOL-MYERS SQUIBB COMPANY-18902239

PATIENT
  Age: 66 Year
  Sex: Male

DRUGS (4)
  1. ERBITUX [Suspect]
     Indication: HEAD AND NECK CANCER
     Route: 042
     Dates: start: 20130514, end: 20130514
  2. DECADRON [Concomitant]
     Route: 042
  3. BENADRYL [Concomitant]
     Route: 042
  4. ZANTAC [Concomitant]
     Route: 042

REACTIONS (1)
  - Anaphylactic reaction [Unknown]
